FAERS Safety Report 5943208-6 (Version None)
Quarter: 2008Q4

REPORT INFORMATION
  Report Type: 
  Country: None (occurrence: None)
  Receive Date: 20081106
  Receipt Date: 20081027
  Transmission Date: 20090506
  Serious: Yes (Other)
  Sender: FDA-Public Use
  Company Number: B0544029A

PATIENT
  Age: 41 Year
  Sex: Female

DRUGS (9)
  1. COMBIVIR [Suspect]
     Indication: HIV INFECTION
     Route: 048
  2. ZIDOVUDINE [Suspect]
     Indication: ANTIVIRAL PROPHYLAXIS
     Route: 042
     Dates: start: 20080501, end: 20080501
  3. ATAZANAVIR SULFATE [Suspect]
     Indication: HIV INFECTION
     Dosage: 400MG PER DAY
     Route: 048
  4. RITONAVIR [Suspect]
     Indication: HIV INFECTION
     Route: 048
  5. DIDANOSINE [Suspect]
     Indication: HIV INFECTION
     Route: 048
  6. EFAVIRENZ [Suspect]
     Indication: HIV INFECTION
     Route: 048
  7. EMTRICITABINE [Suspect]
     Indication: HIV INFECTION
     Route: 048
  8. SAQUINAVIR [Suspect]
     Indication: HIV INFECTION
     Route: 048
  9. LOPINAVIR AND RITONAVIR [Suspect]
     Indication: HIV INFECTION
     Route: 048

REACTIONS (4)
  - DRUG EXPOSURE DURING PREGNANCY [None]
  - HEPATITIS [None]
  - LIVE BIRTH [None]
  - VAGINITIS GARDNERELLA [None]
